FAERS Safety Report 8305732-0 (Version None)
Quarter: 2012Q2

REPORT INFORMATION
  Report Type: 
  Country: None (occurrence: None)
  Receive Date: 20120423
  Receipt Date: 20120412
  Transmission Date: 20120825
  Serious: Yes (Hospitalization)
  Sender: FDA-Public Use
  Company Number: CA-JNJFOC-20120406338

PATIENT
  Sex: Male
  Weight: 83.92 kg

DRUGS (1)
  1. REMICADE [Suspect]
     Indication: CROHN'S DISEASE
     Route: 042
     Dates: end: 20100601

REACTIONS (4)
  - DRUG INEFFECTIVE [None]
  - SMALL INTESTINAL RESECTION [None]
  - IMPAIRED HEALING [None]
  - INCISIONAL DRAINAGE [None]
